FAERS Safety Report 19814050 (Version 3)
Quarter: 2021Q3

REPORT INFORMATION
  Report Type: Report from Study
  Country: AU (occurrence: AU)
  Receive Date: 20210909
  Receipt Date: 20210930
  Transmission Date: 20211014
  Serious: Yes (Other)
  Sender: FDA-Public Use
  Company Number: AU-TAKEDA-2021TUS055877

PATIENT
  Age: 46 Year
  Sex: Male
  Weight: 70 kg

DRUGS (4)
  1. THALIDOMIDE [Suspect]
     Active Substance: THALIDOMIDE
     Indication: PRIMARY AMYLOIDOSIS
     Dosage: UNK
     Route: 065
     Dates: start: 2019
  2. DEXAMETHASONE. [Suspect]
     Active Substance: DEXAMETHASONE
     Indication: PRIMARY AMYLOIDOSIS
     Dosage: UNK
     Route: 065
     Dates: start: 2019
  3. BORTEZOMIB. [Suspect]
     Active Substance: BORTEZOMIB
     Indication: PRIMARY AMYLOIDOSIS
     Dosage: UNK
     Route: 065
     Dates: start: 2019
  4. CYCLOPHOSPHAMIDE. [Suspect]
     Active Substance: CYCLOPHOSPHAMIDE
     Indication: PRIMARY AMYLOIDOSIS
     Dosage: UNK
     Route: 065
     Dates: start: 2019

REACTIONS (5)
  - Off label use [Unknown]
  - Product use in unapproved indication [Unknown]
  - Renal failure [Unknown]
  - Amyloidosis [Unknown]
  - Therapeutic response decreased [Unknown]

NARRATIVE: CASE EVENT DATE: 20200201
